FAERS Safety Report 4811343-1 (Version None)
Quarter: 2005Q4

REPORT INFORMATION
  Report Type: 
  Country: None (occurrence: None)
  Receive Date: 20051026
  Receipt Date: 20051026
  Transmission Date: 20060501
  Serious: Yes (Disabling, Other)
  Sender: FDA-Public Use
  Company Number: None

PATIENT
  Sex: Male
  Weight: 90.7194 kg

DRUGS (1)
  1. SEPTOCAINE [Suspect]
     Indication: HYPOAESTHESIA
     Dosage: INFILTRATION INJECTION
     Dates: start: 20050701

REACTIONS (3)
  - ANAESTHETIC COMPLICATION [None]
  - HYPOAESTHESIA [None]
  - NERVE INJURY [None]
